FAERS Safety Report 4412130-9 (Version None)
Quarter: 2004Q3

REPORT INFORMATION
  Report Type: 
  Country: None (occurrence: None)
  Receive Date: 20040730
  Receipt Date: 20040723
  Transmission Date: 20050211
  Serious: Yes (Hospitalization)
  Sender: FDA-Public Use
  Company Number: FR-GLAXOSMITHKLINE-B0341038A

PATIENT
  Age: 23 Year
  Sex: Male

DRUGS (1)
  1. ZYBAN [Suspect]
     Indication: EX-SMOKER
     Dosage: 150MG TWICE PER DAY
     Route: 048
     Dates: start: 20040101, end: 20040701

REACTIONS (10)
  - ANGIONEUROTIC OEDEMA [None]
  - BRONCHOSPASM [None]
  - INFLAMMATION [None]
  - LYMPH NODE PAIN [None]
  - LYMPHADENOPATHY [None]
  - OEDEMA [None]
  - PAINFUL RESPIRATION [None]
  - PYREXIA [None]
  - RASH MACULO-PAPULAR [None]
  - RASH PRURITIC [None]
